FAERS Safety Report 8596032-2 (Version None)
Quarter: 2012Q3

REPORT INFORMATION
  Report Type: 
  Country: None (occurrence: None)
  Receive Date: 20120807
  Receipt Date: 20120807
  Transmission Date: 20120928
  Serious: Yes (Other)
  Sender: FDA-Public Use
  Company Number: None

PATIENT
  Sex: Female
  Weight: 68.0396 kg

DRUGS (1)
  1. LEXAPRO [Suspect]
     Indication: DEPRESSION
     Dates: start: 20120101

REACTIONS (7)
  - OEDEMA PERIPHERAL [None]
  - DIARRHOEA [None]
  - RENAL IMPAIRMENT [None]
  - PRODUCT SUBSTITUTION ISSUE [None]
  - MENTAL DISORDER [None]
  - AFFECTIVE DISORDER [None]
  - DRUG INTOLERANCE [None]
